FAERS Safety Report 6976989-3 (Version None)
Quarter: 2010Q3

REPORT INFORMATION
  Report Type: 
  Country: None (occurrence: None)
  Receive Date: 20100910
  Receipt Date: 20100901
  Transmission Date: 20110219
  Serious: Yes (Hospitalization)
  Sender: FDA-Public Use
  Company Number: DE-ROCHE-725098

PATIENT
  Age: 55 Year
  Sex: Female
  Weight: 110 kg

DRUGS (1)
  1. XELODA [Suspect]
     Route: 048
     Dates: start: 20100823, end: 20100827

REACTIONS (1)
  - PRINZMETAL ANGINA [None]
